APPROVED DRUG PRODUCT: AUGMENTIN '875'
Active Ingredient: AMOXICILLIN; CLAVULANATE POTASSIUM
Strength: 875MG;EQ 125MG BASE
Dosage Form/Route: TABLET;ORAL
Application: N050720 | Product #001 | TE Code: AB
Applicant: US ANTIBIOTICS LLC
Approved: Feb 13, 1996 | RLD: Yes | RS: No | Type: RX